FAERS Safety Report 4828982-4 (Version None)
Quarter: 2005Q4

REPORT INFORMATION
  Report Type: 
  Country: None (occurrence: None)
  Receive Date: 20051014
  Receipt Date: 20050821
  Transmission Date: 20060501
  Serious: No
  Sender: FDA-Public Use
  Company Number: 2005SP002476

PATIENT
  Age: 52 Year
  Sex: Male
  Weight: 117.028 kg

DRUGS (5)
  1. LUNESTA [Suspect]
     Indication: INSOMNIA
     Dosage: 1 MG;HS;ORAL
     Route: 048
     Dates: start: 20050101
  2. CELEXA [Concomitant]
  3. PREVACID [Concomitant]
  4. ALLOPURINOL [Concomitant]
  5. AMBIEN [Concomitant]

REACTIONS (1)
  - DYSGEUSIA [None]
